FAERS Safety Report 14655208 (Version 1)
Quarter: 2018Q1

REPORT INFORMATION
  Report Type: Spontaneous
  Country: US (occurrence: US)
  Receive Date: 20180319
  Receipt Date: 20180319
  Transmission Date: 20180509
  Serious: Yes (Other)
  Sender: FDA-Public Use
  Company Number: US-LUPIN PHARMACEUTICALS INC.-2018-02172

PATIENT
  Age: 20 Year
  Sex: Female

DRUGS (2)
  1. NORETHINDRONE AND ETHINYL ESTRADIOL [Suspect]
     Active Substance: ETHINYL ESTRADIOL\NORETHINDRONE
     Indication: POLYCYSTIC OVARIES
     Dosage: 1.5/30 MG,
     Route: 065
  2. NORETHINDRONE AND ETHINYL ESTRADIOL [Suspect]
     Active Substance: ETHINYL ESTRADIOL\NORETHINDRONE
     Dosage: 1/20 MG, DECREASED DOSE
     Route: 065

REACTIONS (1)
  - Hepatic adenoma [Recovering/Resolving]
